FAERS Safety Report 5373507-0 (Version None)
Quarter: 2007Q2

REPORT INFORMATION
  Report Type: 
  Country: None (occurrence: None)
  Receive Date: 20070628
  Receipt Date: 20070622
  Transmission Date: 20071010
  Serious: Yes (Hospitalization)
  Sender: FDA-Public Use
  Company Number: A0659663A

PATIENT
  Sex: Female

DRUGS (4)
  1. AMERGE [Suspect]
     Indication: MIGRAINE
     Route: 048
  2. IMITREX [Suspect]
     Indication: MIGRAINE
     Route: 048
  3. FROVA [Suspect]
  4. RELPAX [Suspect]

REACTIONS (2)
  - ARTERIOSPASM CORONARY [None]
  - CARDIOMYOPATHY [None]
